FAERS Safety Report 7625761-X (Version None)
Quarter: 2011Q3

REPORT INFORMATION
  Report Type: 
  Country: None (occurrence: None)
  Receive Date: 20110721
  Receipt Date: 20110712
  Transmission Date: 20111222
  Serious: Yes (Hospitalization, Other)
  Sender: FDA-Public Use
  Company Number: BR-ABBOTT-11P-020-0838611-00

PATIENT
  Sex: Male

DRUGS (7)
  1. FERROUS SULFATE TAB [Concomitant]
     Indication: ANAEMIA
     Route: 048
     Dates: start: 20110101
  2. UNKNOWN COMBINED FORMULA [Concomitant]
     Indication: PRODUCT USED FOR UNKNOWN INDICATION
  3. HUMIRA [Suspect]
     Indication: RHEUMATOID ARTHRITIS
     Route: 058
     Dates: start: 20080801, end: 20110514
  4. LEVOTHYROXINE SODIUM [Concomitant]
     Indication: HYPOTHYROIDISM
     Route: 048
     Dates: start: 20110201
  5. UNKNOWN COMBINED FORMULA [Concomitant]
  6. ASPIRIN [Concomitant]
     Indication: CARDIOVASCULAR DISORDER
     Route: 048
  7. CAPTOPRIL [Concomitant]
     Indication: HYPERTENSION
     Route: 048

REACTIONS (13)
  - HYPOPHAGIA [None]
  - SPEECH DISORDER [None]
  - COMA [None]
  - WOUND SECRETION [None]
  - PROCEDURAL SITE REACTION [None]
  - HYPOACUSIS [None]
  - KNEE ARTHROPLASTY [None]
  - LOWER RESPIRATORY TRACT INFECTION BACTERIAL [None]
  - BLOOD GLUCOSE INCREASED [None]
  - ANAEMIA [None]
  - ENTERAL NUTRITION [None]
  - AMNESIA [None]
  - WOUND INFECTION BACTERIAL [None]
